FAERS Safety Report 6262862-5 (Version None)
Quarter: 2009Q3

REPORT INFORMATION
  Report Type: 
  Country: None (occurrence: None)
  Receive Date: 20090709
  Receipt Date: 20090706
  Transmission Date: 20100115
  Serious: Yes (Hospitalization)
  Sender: FDA-Public Use
  Company Number: US-AMGEN-QUU352592

PATIENT
  Sex: Female

DRUGS (2)
  1. ENBREL [Suspect]
     Indication: PSORIASIS
     Route: 058
     Dates: start: 20060223
  2. ENBREL [Suspect]
     Indication: PUSTULAR PSORIASIS

REACTIONS (2)
  - INJECTION SITE PAIN [None]
  - PUSTULAR PSORIASIS [None]
